FAERS Safety Report 8364061-X (Version None)
Quarter: 2012Q1

REPORT INFORMATION
  Report Type: 
  Country: None (occurrence: None)
  Receive Date: 20120323
  Receipt Date: 20111223
  Transmission Date: 20120608
  Serious: Yes (Hospitalization)
  Sender: FDA-Public Use
  Company Number: 163-21880-11123409

PATIENT
  Age: 76 Year
  Sex: Female
  Weight: 62.5964 kg

DRUGS (12)
  1. VITAMIN D [Concomitant]
  2. SIMVASTATIN [Concomitant]
  3. WARFARIN SODIUM [Concomitant]
  4. OMEPRAZOLE [Concomitant]
  5. ENALAPRIL MALEATE [Concomitant]
  6. CALCIUM + D (CALCIUM D3 ^STADA^) [Concomitant]
  7. CALCITRIOL [Concomitant]
  8. REVLIMID [Suspect]
     Indication: MULTIPLE MYELOMA
     Dosage: 10 MG, DAILY X 28 DAYS, PO
     Route: 048
     Dates: start: 20110620
  9. STOOL SOFTNER (DOCUSATE SODIUM) [Concomitant]
  10. PROBIOTIC (BIFIDOBACTERIUM LACTIS) [Concomitant]
  11. DYAZIDE [Concomitant]
  12. DECADRON [Concomitant]

REACTIONS (3)
  - PULMONARY EMBOLISM [None]
  - DEEP VEIN THROMBOSIS [None]
  - HEART RATE INCREASED [None]
